FAERS Safety Report 7935340-2 (Version None)
Quarter: 2011Q4

REPORT INFORMATION
  Report Type: 
  Country: None (occurrence: None)
  Receive Date: 20111122
  Receipt Date: 20111117
  Transmission Date: 20120403
  Serious: Yes (Other)
  Sender: FDA-Public Use
  Company Number: DK-PFIZER INC-2011204910

PATIENT
  Age: 39 Year
  Sex: Female
  Weight: 73 kg

DRUGS (4)
  1. LYRICA [Suspect]
     Indication: GENERALISED ANXIETY DISORDER
     Dosage: 150 MG, 2X/DAY
     Dates: start: 20090630
  2. VENLAFAXINE [Concomitant]
     Indication: ANXIETY
     Dosage: UNK
     Dates: start: 19970301
  3. SOLIAN [Concomitant]
     Indication: ANXIETY
     Dosage: UNK
     Dates: start: 20060801
  4. LYRICA [Suspect]
     Dosage: 75 MG, 2X/DAY

REACTIONS (2)
  - PSORIASIS [None]
  - ECZEMA [None]
